FAERS Safety Report 5873021-X (Version None)
Quarter: 2008Q3

REPORT INFORMATION
  Report Type: 
  Country: None (occurrence: None)
  Receive Date: 20080905
  Receipt Date: 20080826
  Transmission Date: 20090109
  Serious: Yes (Hospitalization, Other)
  Sender: FDA-Public Use
  Company Number: US-PFIZER INC-2008072794

PATIENT
  Sex: Female
  Weight: 77 kg

DRUGS (7)
  1. AROMASIN [Suspect]
     Route: 048
  2. TRIPTORELIN [Concomitant]
  3. TYLENOL (CAPLET) [Concomitant]
  4. PERCOCET [Concomitant]
  5. PROTONIX [Concomitant]
  6. ZOLOFT [Concomitant]
  7. MULTI-VITAMINS [Concomitant]

REACTIONS (2)
  - DEEP VEIN THROMBOSIS [None]
  - PULMONARY EMBOLISM [None]
